FAERS Safety Report 24557324 (Version 1)
Quarter: 2024Q4

REPORT INFORMATION
  Report Type: Report from Study
  Country: DE (occurrence: DE)
  Receive Date: 20241028
  Receipt Date: 20241028
  Transmission Date: 20250114
  Serious: Yes (Hospitalization)
  Sender: MYLAN
  Company Number: DE-002147023-NVSC2023DE109508

PATIENT
  Sex: Female

DRUGS (18)
  1. METHOTREXATE [Suspect]
     Active Substance: METHOTREXATE
     Indication: Product used for unknown indication
     Dosage: 12.5 MILLIGRAM, QW
     Route: 065
  2. METHOTREXATE [Suspect]
     Active Substance: METHOTREXATE
     Dosage: 17.5 MILLIGRAM
     Route: 065
  3. METHOTREXATE [Suspect]
     Active Substance: METHOTREXATE
     Dosage: 17.5 MILLIGRAM
     Route: 065
  4. METHOTREXATE [Suspect]
     Active Substance: METHOTREXATE
     Dosage: 12.5 MILLIGRAM
     Route: 065
  5. METHOTREXATE [Suspect]
     Active Substance: METHOTREXATE
     Dosage: 12.5 MILLIGRAM
     Route: 065
  6. METHOTREXATE [Suspect]
     Active Substance: METHOTREXATE
     Dosage: 12.5 MILLIGRAM
     Route: 065
  7. METHOTREXATE [Suspect]
     Active Substance: METHOTREXATE
     Dosage: 12.5 MILLIGRAM
     Route: 065
  8. METHOTREXATE [Suspect]
     Active Substance: METHOTREXATE
     Dosage: 12.5 MILLIGRAM
     Route: 065
  9. ERELZI [Suspect]
     Active Substance: ETANERCEPT-SZZS
     Indication: Product used for unknown indication
     Dosage: 5 MILLIGRAM, QW
     Route: 065
  10. ERELZI [Suspect]
     Active Substance: ETANERCEPT-SZZS
     Dosage: 50 MILLIGRAM
     Route: 065
  11. ERELZI [Suspect]
     Active Substance: ETANERCEPT-SZZS
     Dosage: 50 MILLIGRAM
     Route: 065
  12. ERELZI [Suspect]
     Active Substance: ETANERCEPT-SZZS
     Dosage: 50 MILLIGRAM
     Route: 065
     Dates: start: 202201
  13. ETANERCEPT [Suspect]
     Active Substance: ETANERCEPT
     Indication: Product used for unknown indication
     Dosage: 50 MILLIGRAM
     Route: 065
     Dates: start: 202007
  14. ETANERCEPT [Suspect]
     Active Substance: ETANERCEPT
     Dosage: 50 MILLIGRAM
     Route: 065
  15. ETANERCEPT [Suspect]
     Active Substance: ETANERCEPT
     Dosage: 50 MILLIGRAM
     Route: 065
  16. ETANERCEPT [Suspect]
     Active Substance: ETANERCEPT
     Dosage: 50 MILLIGRAM
     Route: 065
  17. ETANERCEPT [Suspect]
     Active Substance: ETANERCEPT
     Dosage: 50 MILLIGRAM
     Route: 065
     Dates: end: 202201
  18. FILGOTINIB [Suspect]
     Active Substance: FILGOTINIB
     Indication: Product used for unknown indication
     Dosage: UNK
     Route: 065

REACTIONS (2)
  - Uterine cyst [Recovered/Resolved]
  - Injection site erythema [Recovered/Resolved]

NARRATIVE: CASE EVENT DATE: 20230320
